FAERS Safety Report 9174322 (Version 1)
Quarter: 2013Q1

REPORT INFORMATION
  Report Type: Spontaneous
  Country: US (occurrence: None)
  Receive Date: 20130318
  Receipt Date: 20130318
  Transmission Date: 20140127
  Serious: Yes (Other)
  Sender: FDA-Public Use
  Company Number: None

PATIENT
  Age: 61 Year
  Sex: Male

DRUGS (1)
  1. ZELBORAF [Suspect]
     Indication: MALIGNANT MELANOMA
     Dosage: 960MG Q12H PO
     Route: 048
     Dates: start: 20130202, end: 20130209

REACTIONS (5)
  - Erythema [None]
  - Sunburn [None]
  - Headache [None]
  - Arthralgia [None]
  - Malaise [None]
